FAERS Safety Report 16187330 (Version 2)
Quarter: 2019Q3

REPORT INFORMATION
  Report Type: Other
  Country: DE (occurrence: DE)
  Receive Date: 20190412
  Receipt Date: 20190726
  Transmission Date: 20191004
  Serious: No
  Sender: FDA-Public Use
  Company Number: DE-LUPIN PHARMACEUTICALS INC.-2019-01587

PATIENT
  Age: 42 Year
  Sex: Male
  Weight: 71 kg

DRUGS (2)
  1. AMITRIPTYLIN [Suspect]
     Active Substance: AMITRIPTYLINE
     Indication: MIGRAINE
     Dosage: UNK, UP TO 150 MG DAILY DOSE
     Route: 048
     Dates: start: 20180421, end: 20180829
  2. LAMOTRIGINE. [Suspect]
     Active Substance: LAMOTRIGINE
     Indication: DEPRESSION
     Dosage: UNK, UP TO 200 MG DAILY DOSE
     Route: 048
     Dates: start: 20180421, end: 20180829

REACTIONS (9)
  - Inadequate analgesia [Recovered/Resolved with Sequelae]
  - Disturbance in attention [Recovered/Resolved]
  - Migraine [Recovered/Resolved with Sequelae]
  - Pre-existing condition improved [Recovered/Resolved with Sequelae]
  - Apathy [Unknown]
  - Illusion [Recovered/Resolved]
  - Mucosal dryness [Unknown]
  - Abdominal discomfort [Recovered/Resolved]
  - Sexual dysfunction [Unknown]

NARRATIVE: CASE EVENT DATE: 201804
